FAERS Safety Report 6496462-9 (Version None)
Quarter: 2009Q4

REPORT INFORMATION
  Report Type: 
  Country: None (occurrence: None)
  Receive Date: 20091214
  Receipt Date: 20091202
  Transmission Date: 20100525
  Serious: Yes (Death, Hospitalization)
  Sender: FDA-Public Use
  Company Number: IN-BAXTER-2009BH017196

PATIENT
  Age: 60 Year
  Sex: Female

DRUGS (2)
  1. DIANEAL [Suspect]
     Indication: PERITONEAL DIALYSIS
     Route: 033
     Dates: start: 20091012, end: 20091117
  2. DIANEAL [Suspect]
     Route: 033
     Dates: start: 20091012, end: 20091117

REACTIONS (2)
  - CARDIAC ARREST [None]
  - PERITONITIS [None]
